FAERS Safety Report 17601442 (Version 2)
Quarter: 2020Q2

REPORT INFORMATION
  Report Type: Spontaneous
  Country: US (occurrence: US)
  Receive Date: 20200331
  Receipt Date: 20200519
  Transmission Date: 20200713
  Serious: Yes (Death, Hospitalization)
  Sender: FDA-Public Use
  Company Number: US-BEH-2020115125

PATIENT
  Age: 89 Year
  Sex: Female

DRUGS (1)
  1. HIZENTRA [Suspect]
     Active Substance: HUMAN IMMUNOGLOBULIN G
     Indication: BRONCHIECTASIS
     Dosage: 14 GRAM, QOW
     Route: 058
     Dates: start: 20190227, end: 20200428

REACTIONS (4)
  - Product use in unapproved indication [Unknown]
  - Death [Fatal]
  - Urinary tract infection [Unknown]
  - No adverse event [Unknown]

NARRATIVE: CASE EVENT DATE: 20200428
